FAERS Safety Report 4943475-1 (Version None)
Quarter: 2006Q1

REPORT INFORMATION
  Report Type: 
  Country: None (occurrence: None)
  Receive Date: 20060309
  Receipt Date: 20060227
  Transmission Date: 20060701
  Serious: Yes (Disabling)
  Sender: FDA-Public Use
  Company Number: 200602934

PATIENT
  Age: 50 Year
  Sex: Male
  Weight: 79.3795 kg

DRUGS (6)
  1. NORVASC [Suspect]
     Indication: HYPERTENSION
     Dosage: 10 MG (10 MG, 1 IN 1 D), ORAL
     Route: 048
     Dates: start: 20050201
  2. ZIAC [Concomitant]
  3. PROMETHAZINE [Concomitant]
  4. HYDROCHLOROTHIAZIDE [Concomitant]
  5. HUMULIN REGULAR (INSULIN HUMAN) [Concomitant]
  6. HUMULIN N [Concomitant]

REACTIONS (1)
  - POOR PERIPHERAL CIRCULATION [None]
